FAERS Safety Report 8813643 (Version 1)
Quarter: 2012Q4

REPORT INFORMATION
  Report Type: 
  Country: IT (occurrence: FR)
  Receive Date: 20120927
  Receipt Date: 20120927
  Transmission Date: 20130627
  Serious: Yes (Hospitalization)
  Sender: FDA-Public Use
  Company Number: FR-FRI-1000038975

PATIENT
  Age: 85 Year
  Sex: Female

DRUGS (10)
  1. NEBIVOLOL [Suspect]
     Indication: HYPERTENSION
     Dosage: 5 mg
     Route: 048
     Dates: end: 20120827
  2. SPIRONOLACTONE [Suspect]
     Indication: HYPERTENSION
     Dosage: 50 mg
     Route: 048
     Dates: end: 20120826
  3. SPIRONOLACTONE [Suspect]
     Dosage: 25 mg
     Route: 048
     Dates: start: 20120827, end: 20120903
  4. RAMIPRIL [Suspect]
     Indication: HYPERTENSION
     Dosage: 5 mg
     Route: 048
     Dates: end: 20120826
  5. RAMIPRIL [Suspect]
     Dosage: 2.5 mg
     Route: 048
     Dates: start: 20120827, end: 20120907
  6. FLUINDIONE [Suspect]
     Indication: ARRHYTHMIA PROPHYLAXIS
     Dosage: 20 mg
     Route: 048
     Dates: end: 20120826
  7. FLUINDIONE [Suspect]
     Dosage: 20 mg
     Route: 048
     Dates: start: 20120829
  8. FUROSEMIDE [Concomitant]
     Indication: HYPERTENSION
     Route: 042
  9. NORSET [Concomitant]
     Indication: COGNITIVE DISORDER
     Route: 048
  10. DIFFU K [Concomitant]
     Route: 048
     Dates: end: 20120826

REACTIONS (5)
  - Malaise [Recovered/Resolved]
  - Fall [Recovered/Resolved]
  - Hypotension [Recovered/Resolved]
  - Renal failure chronic [Recovered/Resolved]
  - International normalised ratio increased [Recovered/Resolved]
